FAERS Safety Report 8217432-6 (Version None)
Quarter: 2012Q1

REPORT INFORMATION
  Report Type: 
  Country: None (occurrence: None)
  Receive Date: 20120315
  Receipt Date: 20120303
  Transmission Date: 20120608
  Serious: Yes (Death, Hospitalization)
  Sender: FDA-Public Use
  Company Number: QSC-2012-0015

PATIENT
  Age: 56 Year
  Sex: Male

DRUGS (5)
  1. CELLCEPT [Concomitant]
  2. SIMVASTATIN [Concomitant]
  3. LOVAZA [Concomitant]
  4. H.P. ACTHAR GEL [Suspect]
     Indication: NEPHROTIC SYNDROME
     Dosage: 80 UNITS, BIW, SUBCUTANEOUS
     Route: 058
     Dates: start: 20111201, end: 20120201
  5. PROGRAF [Concomitant]

REACTIONS (2)
  - SENSATION OF HEAVINESS [None]
  - ASTHENIA [None]
